FAERS Safety Report 16675561 (Version 1)
Quarter: 2019Q3

REPORT INFORMATION
  Report Type: Spontaneous
  Country: US (occurrence: US)
  Receive Date: 20190806
  Receipt Date: 20190806
  Transmission Date: 20191004
  Serious: No
  Sender: FDA-Public Use
  Company Number: US-ELI_LILLY_AND_COMPANY-US201907008552

PATIENT
  Sex: Female

DRUGS (1)
  1. EMGALITY [Suspect]
     Active Substance: GALCANEZUMAB-GNLM
     Indication: PRODUCT USED FOR UNKNOWN INDICATION
     Dosage: UNK, UNKNOWN
     Route: 065

REACTIONS (8)
  - Dizziness [Unknown]
  - Hot flush [Unknown]
  - Nausea [Unknown]
  - Altered visual depth perception [Unknown]
  - Nasal congestion [Unknown]
  - Vision blurred [Unknown]
  - Headache [Unknown]
  - Ear discomfort [Unknown]
